FAERS Safety Report 25379292 (Version 2)
Quarter: 2025Q2

REPORT INFORMATION
  Report Type: Spontaneous
  Country: US (occurrence: US)
  Receive Date: 20250530
  Receipt Date: 20250605
  Transmission Date: 20250716
  Serious: Yes (Other)
  Sender: PFIZER
  Company Number: US-PFIZER INC-PV202500063440

PATIENT
  Age: 73 Year
  Sex: Female

DRUGS (3)
  1. MAGNESIUM SULFATE [Suspect]
     Active Substance: MAGNESIUM SULFATE
     Indication: Chronic obstructive pulmonary disease
     Route: 042
  2. ALBUTEROL [Concomitant]
     Active Substance: ALBUTEROL
     Indication: Chronic obstructive pulmonary disease
     Route: 055
  3. DEXAMETHASONE [Concomitant]
     Active Substance: DEXAMETHASONE
     Indication: Chronic obstructive pulmonary disease
     Route: 048

REACTIONS (5)
  - Incorrect route of product administration [Recovering/Resolving]
  - Product preparation issue [Recovering/Resolving]
  - Vascular injury [Recovering/Resolving]
  - Vascular access site extravasation [Recovering/Resolving]
  - Off label use [Unknown]
